FAERS Safety Report 5504652-4 (Version None)
Quarter: 2007Q4

REPORT INFORMATION
  Report Type: 
  Country: None (occurrence: None)
  Receive Date: 20071101
  Receipt Date: 20071010
  Transmission Date: 20080405
  Serious: No
  Sender: FDA-Public Use
  Company Number: US-BOEHRINGER INGELHEIM PHARMACEUTICALS, INC.-2007-BP-23517BP

PATIENT
  Sex: Female
  Weight: 102 kg

DRUGS (1)
  1. MOBIC [Suspect]
     Route: 048

REACTIONS (1)
  - SWELLING [None]
